FAERS Safety Report 23790464 (Version 1)
Quarter: 2024Q2

REPORT INFORMATION
  Report Type: Spontaneous
  Country: CA (occurrence: CA)
  Receive Date: 20240427
  Receipt Date: 20240427
  Transmission Date: 20240716
  Serious: Yes (Other)
  Sender: FDA-Public Use
  Company Number: CA-TEVA-VS-3190137

PATIENT
  Sex: Female

DRUGS (7)
  1. AMITRIPTYLINE [Suspect]
     Active Substance: AMITRIPTYLINE
     Indication: Depression
     Route: 065
  2. AMITRIPTYLINE [Suspect]
     Active Substance: AMITRIPTYLINE
     Indication: Depression
     Route: 065
  3. ESCITALOPRAM [Suspect]
     Active Substance: ESCITALOPRAM OXALATE
     Indication: Depression
     Route: 065
  4. ESCITALOPRAM [Suspect]
     Active Substance: ESCITALOPRAM OXALATE
     Indication: Depression
     Route: 065
  5. NORTRIPTYLINE [Suspect]
     Active Substance: NORTRIPTYLINE
     Indication: Depression
     Route: 065
  6. NORTRIPTYLINE [Suspect]
     Active Substance: NORTRIPTYLINE
     Indication: Depression
     Route: 065
  7. BOTULINUM TOXIN TYPE A [Concomitant]
     Active Substance: BOTULINUM TOXIN TYPE A
     Indication: Migraine
     Route: 065

REACTIONS (1)
  - Drug ineffective [Unknown]
